FAERS Safety Report 15219847 (Version 1)
Quarter: 2018Q3

REPORT INFORMATION
  Report Type: Spontaneous
  Country: US (occurrence: US)
  Receive Date: 20180731
  Receipt Date: 20180731
  Transmission Date: 20181010
  Serious: Yes (Other)
  Sender: FDA-Public Use
  Company Number: US-JNJFOC-20180725386

PATIENT
  Sex: Male

DRUGS (3)
  1. LISTERINE FRESHBURST ANTISEPTIC [Suspect]
     Active Substance: EUCALYPTOL\MENTHOL\METHYL SALICYLATE\THYMOL
     Indication: DENTAL DISORDER PROPHYLAXIS
     Route: 048
     Dates: start: 19770701, end: 20180719
  2. LISINOPRIL. [Concomitant]
     Active Substance: LISINOPRIL
     Indication: PRODUCT USED FOR UNKNOWN INDICATION
     Route: 065
     Dates: start: 20180623
  3. LISTERINE TOTAL CARE ZERO FRESH MINT [Suspect]
     Active Substance: SODIUM FLUORIDE
     Indication: DENTAL DISORDER PROPHYLAXIS
     Dosage: 20?30 MLS
     Route: 048
     Dates: start: 20110701, end: 20180501

REACTIONS (1)
  - Benign salivary gland neoplasm [Recovered/Resolved]
